FAERS Safety Report 4684947-7 (Version None)
Quarter: 2005Q2

REPORT INFORMATION
  Report Type: 
  Country: None (occurrence: None)
  Receive Date: 20050603
  Receipt Date: 20050523
  Transmission Date: 20051028
  Serious: Yes (Death, Life-Threatening, Hospitalization, Disabling)
  Sender: FDA-Public Use
  Company Number: WAES 0505HKG00002

PATIENT
  Age: 59 Year
  Sex: Male

DRUGS (9)
  1. COZAAR [Suspect]
     Indication: CARDIAC FAILURE
     Dates: start: 20050223, end: 20050425
  2. ALLOPURINOL [Suspect]
     Indication: GOUTY ARTHRITIS
     Dosage: 300 MG PO
     Route: 048
     Dates: start: 20050222, end: 20050426
  3. ASPIRIN [Concomitant]
  4. CARVEDILOL [Concomitant]
  5. DIGOXIN [Concomitant]
  6. FUROSEMIDE [Concomitant]
  7. ISOSORBIDE DINITRATE [Concomitant]
  8. SIMVASTATIN [Concomitant]
  9. SPIRONOLACTONE [Concomitant]

REACTIONS (21)
  - ACUTE PULMONARY OEDEMA [None]
  - ALANINE AMINOTRANSFERASE INCREASED [None]
  - ATRIOVENTRICULAR BLOCK FIRST DEGREE [None]
  - BUNDLE BRANCH BLOCK RIGHT [None]
  - CARDIAC ARREST [None]
  - CARDIAC FAILURE CONGESTIVE [None]
  - CARDIOMEGALY [None]
  - COAGULATION TEST ABNORMAL [None]
  - DIALYSIS [None]
  - DRUG HYPERSENSITIVITY [None]
  - HEPATIC FUNCTION ABNORMAL [None]
  - KLEBSIELLA INFECTION [None]
  - LOWER RESPIRATORY TRACT INFECTION [None]
  - METABOLIC ACIDOSIS [None]
  - PNEUMONIA [None]
  - REFUSAL OF TREATMENT BY PATIENT [None]
  - RENAL FAILURE ACUTE [None]
  - RENAL TUBULAR NECROSIS [None]
  - SINUS TACHYCARDIA [None]
  - SPUTUM CULTURE POSITIVE [None]
  - STEVENS-JOHNSON SYNDROME [None]
